FAERS Safety Report 21388336 (Version 1)
Quarter: 2022Q3

REPORT INFORMATION
  Report Type: Spontaneous
  Country: US (occurrence: US)
  Receive Date: 20220928
  Receipt Date: 20220928
  Transmission Date: 20221026
  Serious: No
  Sender: FDA-Public Use
  Company Number: US-009507513-2209USA007461

PATIENT
  Age: 53 Year
  Sex: Male

DRUGS (5)
  1. KEYTRUDA [Suspect]
     Active Substance: PEMBROLIZUMAB
     Indication: Adenocarcinoma
     Dosage: 5 CYCLES OF 3 WEEKS/CYCLE
  2. CARBOPLATIN [Concomitant]
     Active Substance: CARBOPLATIN
     Indication: Adenocarcinoma
     Dosage: 5 CYCLES OF 3 WEEKS/CYCLE
  3. PEMETREXED [Concomitant]
     Active Substance: PEMETREXED
     Indication: Adenocarcinoma
     Dosage: 5 CYCLES OF 3 WEEKS/CYCLE
  4. DOCETAXEL;RAMUCIRUMAB [Concomitant]
     Indication: Adenocarcinoma
     Dosage: 6 CYCLES OF 3 WEEKS/CYLCE
  5. GEMCITABINE;VINORELBINE [Concomitant]
     Indication: Adenocarcinoma
     Dosage: 2 CYCLES OF 3 WEEKS/CYCLE

REACTIONS (2)
  - Product use in unapproved indication [Unknown]
  - Product use issue [Unknown]
